FAERS Safety Report 8032031-7 (Version None)
Quarter: 2012Q1

REPORT INFORMATION
  Report Type: 
  Country: None (occurrence: None)
  Receive Date: 20120109
  Receipt Date: 20110929
  Transmission Date: 20120608
  Serious: No
  Sender: FDA-Public Use
  Company Number: US-ABBOTT-11P-163-0859496-00

PATIENT
  Age: 72 Year
  Sex: Female

DRUGS (2)
  1. HYDROCODONE BITARTRATE AND ACETAMINOPHEN [Suspect]
     Indication: MIGRAINE
  2. EXCEDRIN (MIGRAINE) [Concomitant]
     Indication: MIGRAINE

REACTIONS (1)
  - DRUG INEFFECTIVE [None]
